FAERS Safety Report 6296951-6 (Version None)
Quarter: 2009Q3

REPORT INFORMATION
  Report Type: 
  Country: None (occurrence: None)
  Receive Date: 20090804
  Receipt Date: 20090731
  Transmission Date: 20100115
  Serious: Yes (Hospitalization)
  Sender: FDA-Public Use
  Company Number: US-GILEAD-2009-0023421

PATIENT
  Sex: Female
  Weight: 118.04 kg

DRUGS (12)
  1. LETAIRIS [Suspect]
     Indication: PULMONARY ARTERIAL HYPERTENSION
     Route: 048
     Dates: start: 20090611
  2. REVATIO [Concomitant]
  3. NORVASC [Concomitant]
  4. METOLAZONE [Concomitant]
  5. LASIX [Concomitant]
  6. SYNTHROID [Concomitant]
  7. HUMALOG [Concomitant]
  8. CELEBREX [Concomitant]
  9. PROVENTIL-HFA [Concomitant]
  10. ZYRTEC-D 12 HOUR [Concomitant]
  11. LEVSIN-SL [Concomitant]
  12. KLOR-CON [Concomitant]

REACTIONS (3)
  - HAEMOGLOBIN DECREASED [None]
  - HAEMORRHAGE [None]
  - INTESTINAL HAEMORRHAGE [None]
